FAERS Safety Report 9094135 (Version 1)
Quarter: 2013Q1

REPORT INFORMATION
  Report Type: Spontaneous
  Country: US (occurrence: None)
  Receive Date: 20130122
  Receipt Date: 20130122
  Transmission Date: 20140127
  Serious: Yes (Hospitalization, Other)
  Sender: FDA-Public Use
  Company Number: ACO_33807_2013

PATIENT
  Age: 65 Year
  Sex: Male

DRUGS (5)
  1. AMPYRA (DALFAMPRIDINE) TABLET, 10MG [Suspect]
     Dates: start: 20110523
  2. AVONEX (INTERFERON BETA-1A) [Concomitant]
  3. BACLOFEN (BACLOFEN) (BACLOFEN) [Concomitant]
  4. REMERON (MIRTAZAPINE) [Concomitant]
  5. ALL OTHER THERAPEUTIC PRODUCTS [Concomitant]

REACTIONS (4)
  - Hyperparathyroidism [None]
  - Kidney infection [None]
  - Nephrolithiasis [None]
  - Drug dose omission [None]
